FAERS Safety Report 12394276 (Version 2)
Quarter: 2016Q2

REPORT INFORMATION
  Report Type: Report from Study
  Country: BR (occurrence: BR)
  Receive Date: 20160523
  Receipt Date: 20160627
  Transmission Date: 20160815
  Serious: Yes (Life-Threatening, Other)
  Sender: FDA-Public Use
  Company Number: BR-BAYER-2016-045416

PATIENT
  Sex: Male

DRUGS (1)
  1. BETAFERON [Suspect]
     Active Substance: INTERFERON BETA-1B
     Indication: MULTIPLE SCLEROSIS
     Dosage: 1 DF, QOD
     Route: 058
     Dates: start: 20110405, end: 20150826

REACTIONS (14)
  - Chills [Recovered/Resolved]
  - Feeling cold [Recovered/Resolved]
  - Cyanosis [Recovered/Resolved]
  - Drug ineffective [None]
  - Adverse event [None]
  - Product use issue [None]
  - Multiple sclerosis [Not Recovered/Not Resolved]
  - Anaphylactic shock [Recovered/Resolved]
  - Neuropathy peripheral [Not Recovered/Not Resolved]
  - Balance disorder [Not Recovered/Not Resolved]
  - Hypotension [Recovered/Resolved]
  - Fear of injection [None]
  - Tremor [Recovered/Resolved]
  - Hypothyroidism [Not Recovered/Not Resolved]

NARRATIVE: CASE EVENT DATE: 2011
